FAERS Safety Report 7402700-8 (Version None)
Quarter: 2011Q2

REPORT INFORMATION
  Report Type: 
  Country: None (occurrence: None)
  Receive Date: 20110408
  Receipt Date: 20110331
  Transmission Date: 20111010
  Serious: Yes (Life-Threatening, Hospitalization)
  Sender: FDA-Public Use
  Company Number: US-ROCHE-709491

PATIENT
  Sex: Female
  Weight: 57.9 kg

DRUGS (35)
  1. COD-LIVER OIL [Concomitant]
     Route: 048
     Dates: start: 20020101
  2. FOLIC ACID [Concomitant]
     Route: 048
     Dates: start: 19990101
  3. VITAMIN A [Concomitant]
     Route: 048
     Dates: start: 20100420
  4. ARISTOSPAN [Concomitant]
     Dosage: 1CC/2CC, FRQ:SD, ARISTOSPAN/SENSORCAINE
     Route: 058
     Dates: start: 20101109, end: 20101109
  5. ZINC [Concomitant]
     Route: 048
     Dates: start: 20020101
  6. PEPCID [Concomitant]
     Route: 048
     Dates: start: 20100610
  7. LISINOPRIL [Concomitant]
     Indication: HYPERTENSION
     Route: 048
     Dates: start: 20100610
  8. PLAQUENIL [Concomitant]
     Route: 048
     Dates: start: 20100827
  9. PRILOSEC [Concomitant]
     Dosage: INDICATION: GI
     Route: 048
     Dates: start: 20081101, end: 20100609
  10. METHYLPHENIDATE [Concomitant]
     Indication: FATIGUE
     Route: 048
     Dates: start: 20081001
  11. ATENOLOL [Concomitant]
     Indication: HYPERTENSION
     Route: 048
     Dates: start: 20070101, end: 20100501
  12. METOPROLOL [Concomitant]
     Indication: HYPERTENSION
     Route: 048
     Dates: start: 20100609
  13. SENSORCAINE [Concomitant]
     Dosage: 1 CC/2CC FREQ: SD,BURSILLS LEFT SHOULDER
     Route: 058
     Dates: start: 20101109, end: 20101109
  14. TOCILIZUMAB [Suspect]
     Route: 042
     Dates: start: 20100216
  15. TOCILIZUMAB [Suspect]
     Dosage: LAST DOSE PRIOR TO SAE:11 JAN 2011, DOSAGE FORM: INFUSION
     Route: 042
  16. FLUOXETINE [Concomitant]
     Indication: DEPRESSION
     Route: 048
     Dates: start: 20000101
  17. METOPROLOL [Concomitant]
     Route: 048
     Dates: start: 20101128
  18. ACETAMINOPHEN [Concomitant]
     Indication: PAIN
     Route: 048
     Dates: start: 20100611
  19. TOCILIZUMAB [Suspect]
     Indication: RHEUMATOID ARTHRITIS
     Route: 042
     Dates: start: 20090421
  20. TOCILIZUMAB [Suspect]
     Route: 042
     Dates: start: 20100315
  21. TOCILIZUMAB [Suspect]
     Route: 042
     Dates: start: 20100415
  22. ASCORBIC ACID [Concomitant]
     Route: 048
     Dates: start: 20020101
  23. ASPIRIN [Concomitant]
     Dosage: INDICATION:CAD PREVENTION
     Route: 048
     Dates: start: 20100610
  24. PLAVIX [Concomitant]
     Indication: THROMBOSIS PROPHYLAXIS
     Route: 048
     Dates: start: 20100609
  25. PLAQUENIL [Concomitant]
     Route: 048
     Dates: start: 20100819
  26. BLINDED METHOTREXATE [Suspect]
     Indication: RHEUMATOID ARTHRITIS
     Route: 048
     Dates: start: 19990101, end: 20100420
  27. SIMVASTATIN [Concomitant]
     Route: 048
     Dates: start: 20070101
  28. ATENOLOL [Concomitant]
     Route: 048
     Dates: start: 20100502
  29. KENALOG [Concomitant]
     Dosage: ROUTE: IA, LEFT WRIST DIFFUSION
     Route: 014
     Dates: start: 20091215, end: 20091215
  30. NITROGLYCERIN [Concomitant]
     Indication: CHEST PAIN
     Dosage: ROUTE: SUBLING
     Route: 050
     Dates: start: 20100610
  31. TOCILIZUMAB [Suspect]
     Dosage: THERAPY TEMPORARILY INTERRUPTED
     Route: 042
     Dates: start: 20100517, end: 20100609
  32. BLINDED METHOTREXATE [Suspect]
     Dosage: LAST DATE PRIOR TO SAE:16 JAN 2011
     Route: 048
     Dates: start: 20090421
  33. ACETAMINOPHEN [Concomitant]
     Dosage: DRUG NAME: ACETAMINOPHEN W/CODEINE, TDD: 2 TABLETS  PRN
     Route: 048
     Dates: start: 20081101
  34. PREDNISONE [Concomitant]
     Route: 048
     Dates: start: 19990101
  35. PREDNISONE [Concomitant]
     Route: 048
     Dates: start: 20070101

REACTIONS (3)
  - CHEST PAIN [None]
  - ANXIETY [None]
  - MYOCARDIAL INFARCTION [None]
